FAERS Safety Report 11076278 (Version 2)
Quarter: 2015Q3

REPORT INFORMATION
  Report Type: Spontaneous
  Country: US (occurrence: US)
  Receive Date: 20150429
  Receipt Date: 20150701
  Transmission Date: 20151125
  Serious: Yes (Hospitalization)
  Sender: FDA-Public Use
  Company Number: US-JNJFOC-20150418247

PATIENT
  Age: 86 Year
  Sex: Female
  Weight: 68.99 kg

DRUGS (2)
  1. ULTRAM [Suspect]
     Active Substance: TRAMADOL HYDROCHLORIDE
     Indication: ARTHRALGIA
     Dosage: THRICE A DAY
     Route: 048
     Dates: start: 20150209, end: 20150221
  2. MIRALAX [Concomitant]
     Active Substance: POLYETHYLENE GLYCOL 3350
     Indication: CONSTIPATION PROPHYLAXIS
     Dosage: 1 TABLESPOONFUL
     Route: 048
     Dates: start: 20150219, end: 20150221

REACTIONS (3)
  - Haemarthrosis [Recovered/Resolved]
  - Faecaloma [Recovered/Resolved]
  - Fall [Unknown]

NARRATIVE: CASE EVENT DATE: 20150209
